FAERS Safety Report 5409564-2 (Version None)
Quarter: 2007Q3

REPORT INFORMATION
  Report Type: 
  Country: None (occurrence: None)
  Receive Date: 20070807
  Receipt Date: 20070807
  Transmission Date: 20080115
  Serious: Yes (Hospitalization)
  Sender: FDA-Public Use
  Company Number: None

PATIENT
  Sex: Female
  Weight: 62.3 kg

DRUGS (3)
  1. CYTARABINE [Suspect]
     Dosage: 3200 MG
     Dates: end: 20070703
  2. ETOPOSIDE [Suspect]
     Dosage: 2360 MG
     Dates: end: 20070703
  3. RITUXIMAB (MOAB C2B8 ANTI CD20, CHIMERIC) [Suspect]
     Dosage: 1200 MG
     Dates: end: 20070710

REACTIONS (7)
  - BLOOD CULTURE POSITIVE [None]
  - BLOOD PRESSURE DIASTOLIC DECREASED [None]
  - CULTURE STOOL POSITIVE [None]
  - DIARRHOEA [None]
  - ENTEROCOCCAL INFECTION [None]
  - FEBRILE NEUTROPENIA [None]
  - SKIN DISORDER [None]
